FAERS Safety Report 7552385-5 (Version None)
Quarter: 2011Q2

REPORT INFORMATION
  Report Type: 
  Country: None (occurrence: None)
  Receive Date: 20110616
  Receipt Date: 20090501
  Transmission Date: 20111010
  Serious: Yes (Hospitalization, Other)
  Sender: FDA-Public Use
  Company Number: PHFR2005IE01543

PATIENT
  Sex: Male

DRUGS (14)
  1. CLOZAPINE [Suspect]
     Dosage: 275 MG, QD
     Route: 048
     Dates: start: 20050415
  2. LEVOTHYROXINE SODIUM [Concomitant]
     Indication: HYPOTHYROIDISM
     Dosage: 100 MG,PER DAY
     Route: 048
  3. HALOPERIDOL [Concomitant]
     Indication: PSYCHOTIC DISORDER
     Dosage: 5 MG, MANE
     Route: 048
  4. CELEBREX [Concomitant]
     Indication: ANALGESIC THERAPY
     Dosage: 200 MG, PER DAY
     Route: 048
  5. DOXYCYCLINE [Concomitant]
     Indication: CHRONIC OBSTRUCTIVE PULMONARY DISEASE
  6. TRITACE [Concomitant]
     Indication: HYPERTENSION
     Dosage: 5 MG, PER DAY
     Route: 048
  7. SEREVENT [Concomitant]
     Indication: CHRONIC OBSTRUCTIVE PULMONARY DISEASE
     Dosage: 2 PUFFS, BID
  8. DIAMICRON [Concomitant]
     Indication: TYPE 2 DIABETES MELLITUS
     Dosage: 300 MG, PER DAY
     Route: 048
  9. LAMICTAL [Concomitant]
     Route: 065
  10. KEMADRIN [Concomitant]
     Indication: ANTICHOLINERGIC SYNDROME
     Dosage: 5 MG, PER DAY
     Route: 048
  11. CLONAZEPAM [Concomitant]
     Indication: ANXIETY
     Dosage: 0.5 MG,PER DAY
     Route: 048
  12. OMNIC [Concomitant]
     Indication: BENIGN PROSTATIC HYPERPLASIA
     Dosage: 0.4 MG, PER DAY
     Route: 048
  13. CLOZAPINE [Suspect]
     Indication: SCHIZOPHRENIA
     Dosage: 175 MG, QD
     Route: 048
     Dates: start: 20041118
  14. HALOPERIDOL [Concomitant]
     Dosage: 10 MG, NOCTE

REACTIONS (18)
  - URINARY TRACT INFECTION [None]
  - HYPERTENSION [None]
  - HAEMATOCRIT DECREASED [None]
  - HEAD INJURY [None]
  - DYSPNOEA [None]
  - PO2 DECREASED [None]
  - NEUTROPHIL COUNT INCREASED [None]
  - FALL [None]
  - PCO2 INCREASED [None]
  - CHRONIC OBSTRUCTIVE PULMONARY DISEASE [None]
  - TYPE 2 DIABETES MELLITUS [None]
  - DEPRESSED LEVEL OF CONSCIOUSNESS [None]
  - PNEUMONIA [None]
  - SYNCOPE [None]
  - AGITATION [None]
  - WHITE BLOOD CELL COUNT INCREASED [None]
  - SOMNOLENCE [None]
  - LOWER RESPIRATORY TRACT INFECTION [None]
